FAERS Safety Report 20943257 (Version 1)
Quarter: 2022Q2

REPORT INFORMATION
  Report Type: Spontaneous
  Country: US (occurrence: US)
  Receive Date: 20220610
  Receipt Date: 20220610
  Transmission Date: 20220721
  Serious: No
  Sender: FDA-Public Use
  Company Number: US-Global Blood Therapeutics Inc-US-GBT-22-00222

PATIENT
  Age: 41 Year
  Sex: Male

DRUGS (7)
  1. OXBRYTA [Suspect]
     Active Substance: VOXELOTOR
     Indication: Sickle cell disease
     Dates: start: 202005, end: 20200807
  2. OXBRYTA [Suspect]
     Active Substance: VOXELOTOR
     Dates: start: 20200807, end: 20201104
  3. OXBRYTA [Suspect]
     Active Substance: VOXELOTOR
     Dates: start: 20201107, end: 202107
  4. HYDROXYUREA [Concomitant]
     Active Substance: HYDROXYUREA
     Indication: Product used for unknown indication
     Dates: start: 20140130
  5. FOLIC ACID [Concomitant]
     Active Substance: FOLIC ACID
     Indication: Product used for unknown indication
     Dates: start: 20101202, end: 20210709
  6. PERCOCET [Concomitant]
     Active Substance: ACETAMINOPHEN\OXYCODONE HYDROCHLORIDE
     Indication: Product used for unknown indication
     Dosage: 5/325 MG AS NEEDED
     Dates: start: 20120209
  7. CANNABIS SATIVA SUBSP. INDICA TOP [Concomitant]
     Active Substance: CANNABIS SATIVA SUBSP. INDICA TOP
     Indication: Product used for unknown indication
     Dosage: DOSAGE NOT PROVIDED, CERTIFICATION IN 1 YEAR EXPIRING MAY 2020

REACTIONS (5)
  - Alanine aminotransferase abnormal [Recovered/Resolved]
  - Abdominal pain [Unknown]
  - Therapy non-responder [Unknown]
  - Therapy cessation [Unknown]
  - Insurance issue [Unknown]

NARRATIVE: CASE EVENT DATE: 20200101
